FAERS Safety Report 8790792 (Version 1)
Quarter: 2012Q4

REPORT INFORMATION
  Report Type: Spontaneous
  Country: US (occurrence: None)
  Receive Date: 20120912
  Receipt Date: 20120912
  Transmission Date: 20130627
  Serious: Yes (Life-Threatening)
  Sender: FDA-Public Use
  Company Number: None

PATIENT
  Age: 63 Year
  Sex: Male
  Weight: 112.9 kg

DRUGS (1)
  1. METHADONE [Suspect]
     Indication: NON-SMALL CELL LUNG CANCER
     Route: 048
     Dates: start: 20120115, end: 20120115

REACTIONS (4)
  - Sedation [None]
  - Respiratory depression [None]
  - Hypotension [None]
  - Hypoxia [None]
